FAERS Safety Report 7688278-2 (Version None)
Quarter: 2011Q3

REPORT INFORMATION
  Report Type: 
  Country: None (occurrence: None)
  Receive Date: 20110817
  Receipt Date: 20101221
  Transmission Date: 20111222
  Serious: No
  Sender: FDA-Public Use
  Company Number: US-KINGPHARMUSA00001-K201001535

PATIENT
  Sex: Female

DRUGS (1)
  1. CYTOMEL [Suspect]
     Indication: THYROID HORMONE REPLACEMENT THERAPY
     Dosage: 5 MCG QAM + 2.5 MCG QPM
     Route: 048
     Dates: start: 20100701

REACTIONS (3)
  - ASTHENIA [None]
  - MUSCLE SPASMS [None]
  - ENERGY INCREASED [None]
